FAERS Safety Report 9841880 (Version 5)
Quarter: 2014Q2

REPORT INFORMATION
  Report Type: Spontaneous
  Country: JP (occurrence: JP)
  Receive Date: 20140124
  Receipt Date: 20140416
  Transmission Date: 20141212
  Serious: Yes (Life-Threatening, Other)
  Sender: FDA-Public Use
  Company Number: JP-OTSUKA-JP-2014-10123

PATIENT
  Age: 78 Year
  Sex: Male

DRUGS (28)
  1. SAMSCA [Suspect]
     Indication: OEDEMA DUE TO HEPATIC DISEASE
     Dosage: 7.5 MG MILLIGRAM(S), QAM
     Route: 048
     Dates: start: 20131206, end: 20131230
  2. SAMSCA [Suspect]
     Dosage: 3.75 MG MILLIGRAM(S), QAM
     Route: 048
     Dates: start: 20131231
  3. BASEN [Concomitant]
     Dosage: 0.9 MG MILLIGRAM(S), DAILY DOSE
     Route: 048
  4. BIO THREE [Concomitant]
     Dosage: 3 DF DOSAGE FORM, DAILY DOSE
     Route: 048
  5. LENDORMIN [Concomitant]
     Indication: INSOMNIA
     Dosage: 0.125 MG MILLIGRAM(S), PRN
     Route: 048
     Dates: end: 20131228
  6. LENDORMIN [Concomitant]
     Dosage: 0.25 MG MILLIGRAM(S), PRN
     Route: 048
     Dates: start: 20131229
  7. SELBEX [Concomitant]
     Dosage: 150 MG MILLIGRAM(S), DAILY DOSE
     Route: 048
     Dates: end: 20131218
  8. SELBEX [Concomitant]
     Dosage: 150 MG MILLIGRAM(S), DAILY DOSE
     Route: 048
     Dates: start: 20140101
  9. ASPARA POTASSIUM [Concomitant]
     Dosage: 900 MG MILLIGRAM(S), DAILY DOSE
     Route: 048
     Dates: end: 20131210
  10. ASPARA POTASSIUM [Concomitant]
     Dosage: 1800 MG MILLIGRAM(S), DAILY DOSE
     Route: 048
     Dates: start: 20131211, end: 20131217
  11. ASPARA POTASSIUM [Concomitant]
     Dosage: 1800 MG MILLIGRAM(S), DAILY DOSE
     Route: 048
     Dates: start: 20131219, end: 20131229
  12. ASPARA POTASSIUM [Concomitant]
     Dosage: 2700 MG MILLIGRAM(S), DAILY DOSE
     Route: 048
     Dates: start: 20131230
  13. URSO [Concomitant]
     Dosage: 300 MG MILLIGRAM(S), DAILY DOSE
     Route: 048
  14. WARFARIN K [Concomitant]
     Dosage: 1 MG MILLIGRAM(S), QAM
     Route: 048
     Dates: start: 20130815, end: 20131206
  15. WARFARIN K [Concomitant]
     Dosage: 0.75 MG MILLIGRAM(S), QAM
     Route: 048
     Dates: start: 20131207, end: 20131208
  16. WARFARIN K [Concomitant]
     Dosage: 0.5 MG MILLIGRAM(S), DAILY DOSE
     Route: 048
     Dates: start: 20131209, end: 20131212
  17. LASIX [Concomitant]
     Dosage: 10 MG MILLIGRAM(S), QAM
     Route: 048
     Dates: start: 20131201, end: 20131205
  18. LASIX [Concomitant]
     Dosage: 10 MG MILLIGRAM(S), QAM
     Route: 048
     Dates: start: 20131219, end: 20131225
  19. LASIX [Concomitant]
     Dosage: 20 MG MILLIGRAM(S), QAM
     Route: 048
     Dates: start: 20131226, end: 20140108
  20. LASIX [Concomitant]
     Dosage: 60 MG MILLIGRAM(S), QAM
     Route: 048
     Dates: start: 20140109, end: 20140109
  21. LASIX [Concomitant]
     Dosage: 30 MG MILLIGRAM(S), QAM
     Route: 048
     Dates: start: 20140110, end: 20140116
  22. LASIX [Concomitant]
     Dosage: 40 MG MILLIGRAM(S), QAM
     Route: 048
     Dates: start: 20140117, end: 20140122
  23. LASIX [Concomitant]
     Dosage: 50 MG MILLIGRAM(S), QAM
     Route: 048
     Dates: start: 20140123, end: 20140131
  24. SYAKUYAKUKANZOTO [Concomitant]
     Dosage: 3 DF DOSAGE FORM, DAILY DOSE
     Route: 048
     Dates: start: 20131201, end: 20140131
  25. PORTOLAC [Concomitant]
     Dosage: 18 G GRAM(S), DAILY DOSE
     Route: 048
     Dates: start: 20131201, end: 20140131
  26. LIVACT [Concomitant]
     Dosage: 12.45 G GRAM(S), DAILY DOSE
     Route: 048
     Dates: start: 20131201, end: 20140131
  27. CALONAL [Concomitant]
     Indication: PAIN
     Dosage: 400 MG MILLIGRAM(S), PRN
     Route: 048
     Dates: start: 20131231, end: 20140131
  28. CALONAL [Concomitant]
     Indication: PYREXIA

REACTIONS (2)
  - Portal vein thrombosis [Not Recovered/Not Resolved]
  - Blood bilirubin increased [Not Recovered/Not Resolved]
